FAERS Safety Report 7972844-0 (Version None)
Quarter: 2011Q4

REPORT INFORMATION
  Report Type: 
  Country: None (occurrence: None)
  Receive Date: 20111213
  Receipt Date: 20111129
  Transmission Date: 20120403
  Serious: Yes (Hospitalization)
  Sender: FDA-Public Use
  Company Number: DE-MYLANLABS-2011S1025214

PATIENT
  Age: 85 Year
  Sex: Female

DRUGS (5)
  1. RISPERIDONE [Suspect]
     Indication: DEPRESSION
     Route: 048
     Dates: start: 20101028, end: 20110722
  2. ARICEPT [Suspect]
     Indication: DEMENTIA
     Route: 048
     Dates: start: 20101028, end: 20110729
  3. OXYCODONE HCL [Suspect]
     Indication: PRODUCT USED FOR UNKNOWN INDICATION
     Route: 048
     Dates: start: 20101122, end: 20110722
  4. MIRTAZAPINE [Suspect]
     Indication: PRODUCT USED FOR UNKNOWN INDICATION
     Route: 048
     Dates: start: 20100423
  5. PAROXETINE HCL [Suspect]
     Indication: PRODUCT USED FOR UNKNOWN INDICATION
     Route: 048
     Dates: start: 20101025, end: 20110722

REACTIONS (1)
  - PLEUROTHOTONUS [None]
